FAERS Safety Report 8555524-2 (Version None)
Quarter: 2012Q3

REPORT INFORMATION
  Report Type: 
  Country: None (occurrence: None)
  Receive Date: 20120731
  Receipt Date: 20120123
  Transmission Date: 20120928
  Serious: No
  Sender: FDA-Public Use
  Company Number: US-ASTRAZENECA-2010SE61097

PATIENT
  Age: 49 Year
  Sex: Female
  Weight: 99.8 kg

DRUGS (11)
  1. SEROQUEL [Suspect]
     Route: 048
  2. SEROQUEL [Suspect]
     Route: 048
  3. SEROQUEL [Suspect]
     Route: 048
  4. ATIVAN [Concomitant]
  5. SEROQUEL [Suspect]
     Indication: ANXIETY DISORDER
     Route: 048
     Dates: start: 20030101, end: 20101226
  6. SEROQUEL [Suspect]
     Route: 048
  7. SEROQUEL [Suspect]
     Route: 048
  8. SEROQUEL [Suspect]
     Indication: SCHIZOPHRENIA
     Route: 048
     Dates: start: 20030101, end: 20101226
  9. SEROQUEL [Suspect]
     Indication: BIPOLAR DISORDER
     Route: 048
     Dates: start: 20030101, end: 20101226
  10. LAMICTAL [Concomitant]
  11. SEROQUEL [Suspect]
     Route: 048

REACTIONS (15)
  - THINKING ABNORMAL [None]
  - PSYCHIATRIC SYMPTOM [None]
  - INCREASED APPETITE [None]
  - ANXIETY [None]
  - OFF LABEL USE [None]
  - ABDOMINAL DISCOMFORT [None]
  - DEPRESSION [None]
  - IRRITABILITY [None]
  - WEIGHT INCREASED [None]
  - SCHIZOPHRENIA [None]
  - BORDERLINE PERSONALITY DISORDER [None]
  - DRUG DOSE OMISSION [None]
  - INSOMNIA [None]
  - WITHDRAWAL SYNDROME [None]
  - BIPOLAR DISORDER [None]
